FAERS Safety Report 22291329 (Version 1)
Quarter: 2023Q2

REPORT INFORMATION
  Report Type: Spontaneous
  Country: DK (occurrence: DK)
  Receive Date: 20230506
  Receipt Date: 20230506
  Transmission Date: 20230722
  Serious: Yes (Death, Other)
  Sender: FDA-Public Use
  Company Number: DK-AMGEN-DNKSP2023075938

PATIENT
  Sex: Female

DRUGS (3)
  1. ROMIPLOSTIM [Suspect]
     Active Substance: ROMIPLOSTIM
     Indication: Immune thrombocytopenia
     Dosage: 2 MILLIGRAM PER KILOGRAM
     Route: 065
  2. ROMIPLOSTIM [Suspect]
     Active Substance: ROMIPLOSTIM
     Dosage: 4 MILLIGRAM PER KILOGRAM
     Route: 065
  3. Gestageno [Concomitant]
     Indication: Immune thrombocytopenia
     Dosage: UNK

REACTIONS (5)
  - Death [Fatal]
  - Haemorrhage intracranial [Unknown]
  - Therapy partial responder [Unknown]
  - Heavy menstrual bleeding [Unknown]
  - Mucosal haemorrhage [Unknown]
